FAERS Safety Report 10109196 (Version 1)
Quarter: 2014Q2

REPORT INFORMATION
  Report Type: Spontaneous
  Country: GB (occurrence: GB)
  Receive Date: 20140425
  Receipt Date: 20140425
  Transmission Date: 20141212
  Serious: Yes (Other)
  Sender: FDA-Public Use
  Company Number: GB-MYLANLABS-2014S1008850

PATIENT
  Age: 42 Year
  Sex: Male
  Weight: 90 kg

DRUGS (2)
  1. LORATADINE [Suspect]
     Indication: SEASONAL ALLERGY
     Dosage: 1 OR 2 TABLETS A DAY DEPENDING ON NEED.
     Route: 048
     Dates: start: 20130501, end: 20130601
  2. ACRIVASTINE [Suspect]
     Indication: SEASONAL ALLERGY
     Dosage: 1 - 2 PER DAY DEPENDING ON NEED
     Route: 048
     Dates: start: 20130501, end: 20130501

REACTIONS (4)
  - Dizziness [Recovered/Resolved]
  - Dyspnoea [Recovered/Resolved]
  - Asthenia [Recovered/Resolved]
  - Chest pain [Recovered/Resolved]
